FAERS Safety Report 8447089-0 (Version None)
Quarter: 2012Q2

REPORT INFORMATION
  Report Type: 
  Country: None (occurrence: None)
  Receive Date: 20120619
  Receipt Date: 20110908
  Transmission Date: 20120825
  Serious: No
  Sender: FDA-Public Use
  Company Number: US-PFIZER INC-K201101042

PATIENT
  Weight: 74.83 kg

DRUGS (2)
  1. LEVOXYL [Suspect]
     Indication: THYROID DISORDER
     Dosage: 50 MCG, QIW + 75 MCG, TIW
     Route: 048
  2. VITAMIN B-12 [Concomitant]
     Dosage: UNK

REACTIONS (2)
  - INCORRECT STORAGE OF DRUG [None]
  - FATIGUE [None]
